FAERS Safety Report 12939519 (Version 1)
Quarter: 2016Q4

REPORT INFORMATION
  Report Type: Spontaneous
  Country: US (occurrence: US)
  Receive Date: 20161114
  Receipt Date: 20161114
  Transmission Date: 20170207
  Serious: Yes (Hospitalization)
  Sender: FDA-Public Use
  Company Number: None

PATIENT
  Age: 85 Year
  Sex: Female
  Weight: 51.3 kg

DRUGS (5)
  1. RAMIPRIL. [Concomitant]
     Active Substance: RAMIPRIL
  2. VITAMIN D3 [Concomitant]
     Active Substance: CHOLECALCIFEROL
  3. CITALOPRAM [Suspect]
     Active Substance: CITALOPRAM HYDROBROMIDE
     Indication: ANXIETY
     Dosage: QUANTITY:1 TABLET(S); DAILY; ORAL?
     Route: 048
     Dates: start: 20160921, end: 20160922
  4. ESCITALOPRAM [Suspect]
     Active Substance: ESCITALOPRAM OXALATE
  5. PRAVASTATIN. [Concomitant]
     Active Substance: PRAVASTATIN

REACTIONS (5)
  - Abnormal behaviour [None]
  - Abnormal dreams [None]
  - Hallucination [None]
  - Thinking abnormal [None]
  - Delirium [None]

NARRATIVE: CASE EVENT DATE: 20160922
